FAERS Safety Report 4633792-7 (Version None)
Quarter: 2005Q1

REPORT INFORMATION
  Report Type: 
  Country: None (occurrence: None)
  Receive Date: 20050325
  Receipt Date: 20041210
  Transmission Date: 20050727
  Serious: No
  Sender: FDA-Public Use
  Company Number: USA041285861

PATIENT
  Age: 75 Year
  Sex: Female
  Weight: 70 kg

DRUGS (3)
  1. FORTEO [Suspect]
     Indication: OSTEOPOROSIS
     Dosage: 20 UG/1 DAY
     Dates: start: 20041112
  2. BEXTRA [Concomitant]
  3. CELEBREX [Concomitant]

REACTIONS (3)
  - DIARRHOEA [None]
  - INJECTION SITE HAEMORRHAGE [None]
  - SKIN LACERATION [None]
